FAERS Safety Report 13256402 (Version 1)
Quarter: 2017Q1

REPORT INFORMATION
  Report Type: Spontaneous
  Country: US (occurrence: US)
  Receive Date: 20170220
  Receipt Date: 20170220
  Transmission Date: 20170428
  Serious: Yes (Death)
  Sender: FDA-Public Use
  Company Number: None

PATIENT
  Age: 72 Year
  Sex: Male

DRUGS (1)
  1. KEYTRUDA [Suspect]
     Active Substance: PEMBROLIZUMAB
     Indication: METASTASIS
     Dates: start: 20161015, end: 20170130

REACTIONS (3)
  - Pulmonary mass [None]
  - Drug ineffective [None]
  - Bedridden [None]

NARRATIVE: CASE EVENT DATE: 20170130
